FAERS Safety Report 12805650 (Version 1)
Quarter: 2016Q4

REPORT INFORMATION
  Report Type: Spontaneous
  Country: US (occurrence: US)
  Receive Date: 20161004
  Receipt Date: 20161004
  Transmission Date: 20170207
  Serious: No
  Sender: FDA-Public Use
  Company Number: US-009507513-1609USA008309

PATIENT
  Weight: 76.19 kg

DRUGS (1)
  1. ETONOGESTREL IMPLANT- UNKNOWN [Suspect]
     Active Substance: ETONOGESTREL
     Dosage: UNK, IN LEFT UPPER EXTREMITY
     Route: 059
     Dates: end: 20160602

REACTIONS (1)
  - Device breakage [Recovered/Resolved]
